FAERS Safety Report 9896041 (Version 2)
Quarter: 2014Q1

REPORT INFORMATION
  Report Type: Spontaneous
  Country: US (occurrence: US)
  Receive Date: 20140213
  Receipt Date: 20140213
  Transmission Date: 20141002
  Serious: No
  Sender: FDA-Public Use
  Company Number: US-BRISTOL-MYERS SQUIBB COMPANY-19014364

PATIENT
  Age: 56 Year
  Sex: Female
  Weight: 88.43 kg

DRUGS (12)
  1. ABATACEPT SUBQ INJECTION 125MG/ML [Suspect]
     Dosage: 1DF: 125 MG/ML
     Route: 058
  2. ULTRAM [Concomitant]
     Dosage: TABS
  3. PREDNISONE [Concomitant]
     Dosage: TABS
  4. OMEPRAZOLE [Concomitant]
     Dosage: CAPS
  5. CYCLOBENZAPRINE [Concomitant]
     Dosage: TABS
  6. MOBIC [Concomitant]
     Dosage: TABS
  7. CHONDROITIN [Concomitant]
     Dosage: CAPS
  8. FISH OIL [Concomitant]
     Dosage: CAPS
  9. COQ10 [Concomitant]
     Dosage: CAPS
  10. MULTIVITAMIN [Concomitant]
     Dosage: CAPS
  11. HYDROCODONE [Concomitant]
     Dosage: TABS
  12. HOMATROPINE [Concomitant]

REACTIONS (1)
  - Petechiae [Unknown]
